FAERS Safety Report 8358564-1 (Version None)
Quarter: 2012Q2

REPORT INFORMATION
  Report Type: 
  Country: None (occurrence: None)
  Receive Date: 20120514
  Receipt Date: 20120507
  Transmission Date: 20120825
  Serious: Yes (Other)
  Sender: FDA-Public Use
  Company Number: US-BAYER-2012-042523

PATIENT
  Age: 24 Year
  Sex: Female
  Weight: 65.76 kg

DRUGS (9)
  1. YASMIN [Suspect]
  2. ESOMEPRAZOLE MAGNESIUM [Concomitant]
     Dosage: 40 MG, QD
     Route: 048
     Dates: start: 20101130
  3. NAPROSYN [Concomitant]
     Dosage: UNK
     Dates: start: 20101130
  4. YAZ [Suspect]
  5. BUSPAR [Concomitant]
     Dosage: 5 MG, UNK
     Route: 048
     Dates: start: 20101130
  6. METHYLPREDNISOLONE [Concomitant]
     Indication: RADICULOPATHY
     Dosage: 4 MG, UNK
     Route: 048
     Dates: start: 20101130
  7. ZOFRAN [Concomitant]
     Dosage: 4 MG, BID
     Route: 048
     Dates: start: 20101130
  8. TRAMADOL HYDROCHLORIDE [Concomitant]
     Dosage: UNK
     Dates: start: 20101130
  9. CITALOPRAM HYDROBROMIDE [Concomitant]
     Indication: ANXIETY
     Dosage: 10 MG, UNK
     Route: 048
     Dates: start: 20110127

REACTIONS (7)
  - GALLBLADDER NON-FUNCTIONING [None]
  - PAIN [None]
  - THROMBOSIS [None]
  - MIGRAINE [None]
  - CHOLELITHIASIS [None]
  - DEEP VEIN THROMBOSIS [None]
  - INJURY [None]
